FAERS Safety Report 8863822 (Version 1)
Quarter: 2012Q4

REPORT INFORMATION
  Report Type: 
  Country: US (occurrence: US)
  Receive Date: 20121024
  Receipt Date: 20121024
  Transmission Date: 20130627
  Serious: No
  Sender: FDA-Public Use
  Company Number: US-AMGEN-USASP2011064142

PATIENT
  Age: 58 Year

DRUGS (11)
  1. ENBREL [Suspect]
     Indication: PRODUCT USED FOR UNKNOWN INDICATION
     Dosage: 50 mg, qwk
  2. FENTANYL [Concomitant]
     Dosage: 50 mug, UNK
  3. HYDROCODONE [Concomitant]
  4. CARBATROL [Concomitant]
     Dosage: 200 mg, UNK
  5. PREMARIN [Concomitant]
     Dosage: .625 mg, UNK
  6. PREDNISONE [Concomitant]
     Dosage: 2.5 mg, UNK
  7. METHOTREXATE [Concomitant]
     Dosage: 2.5 mg, UNK
  8. PRESTIQ [Concomitant]
     Dosage: 100 mg, UNK
  9. AMBIEN [Concomitant]
     Dosage: 5 mg, UNK
  10. FOLIC ACID [Concomitant]
     Dosage: 1 mg, UNK
  11. VITAMIN D /00107901/ [Concomitant]
     Dosage: 1 mg, UNK

REACTIONS (1)
  - Drug ineffective [Unknown]
